FAERS Safety Report 9928108 (Version 1)
Quarter: 2014Q1

REPORT INFORMATION
  Report Type: Spontaneous
  Country: JP (occurrence: None)
  Receive Date: 20140224
  Receipt Date: 20140224
  Transmission Date: 20141002
  Serious: No
  Sender: FDA-Public Use
  Company Number: B0970199A

PATIENT
  Age: 37 Year
  Sex: Female

DRUGS (17)
  1. PAROXETINE HYDROCHLORIDE [Suspect]
     Indication: PRODUCT USED FOR UNKNOWN INDICATION
     Route: 048
     Dates: end: 20140209
  2. VEGETAMIN A [Concomitant]
  3. QUETIAPINE [Concomitant]
  4. ALPRAZOLAM [Concomitant]
  5. DIAZEPAM [Concomitant]
  6. CHLORPROMAZINE HCL [Concomitant]
  7. CLOTIAZEPAM [Concomitant]
  8. AMOXAPINE [Concomitant]
  9. FLUVOXAMINE MALEATE [Concomitant]
  10. FAMOTIDINE [Concomitant]
  11. OLANZAPINE [Concomitant]
  12. BROTIZOLAM [Concomitant]
  13. NITRAZEPAM [Concomitant]
  14. QUAZEPAM [Concomitant]
  15. CLONAZEPAM [Concomitant]
  16. FLURAZEPAM [Concomitant]
  17. FLURAZEPAM DIHCL [Concomitant]

REACTIONS (2)
  - Rhabdomyolysis [None]
  - Gastritis [None]
